FAERS Safety Report 15281090 (Version 1)
Quarter: 2018Q3

REPORT INFORMATION
  Report Type: Report from Study
  Country: US (occurrence: US)
  Receive Date: 20180815
  Receipt Date: 20180815
  Transmission Date: 20181010
  Serious: Yes (Hospitalization)
  Sender: FDA-Public Use
  Company Number: US-ACTELION-A-NJ2018-177293

PATIENT
  Age: 34 Year
  Sex: Female
  Weight: 52.61 kg

DRUGS (2)
  1. OPSUMIT [Concomitant]
     Active Substance: MACITENTAN
  2. UPTRAVI [Suspect]
     Active Substance: SELEXIPAG
     Indication: PULMONARY ARTERIAL HYPERTENSION
     Dosage: 400 MCG, BID
     Route: 048

REACTIONS (6)
  - Diarrhoea [Unknown]
  - Pyrexia [Unknown]
  - White blood cell count decreased [Unknown]
  - Systemic lupus erythematosus [Unknown]
  - Malaise [Unknown]
  - Headache [Unknown]
